FAERS Safety Report 25104040 (Version 1)
Quarter: 2025Q1

REPORT INFORMATION
  Report Type: Spontaneous
  Country: JP (occurrence: JP)
  Receive Date: 20250321
  Receipt Date: 20250321
  Transmission Date: 20250409
  Serious: Yes (Hospitalization, Other)
  Sender: EXELIXIS
  Company Number: JP-BRISTOL-MYERS SQUIBB COMPANY-2022-115967

PATIENT
  Age: 75 Year
  Sex: Male
  Weight: 72.1 kg

DRUGS (11)
  1. CABOMETYX [Suspect]
     Active Substance: CABOZANTINIB S-MALATE
     Indication: Metastatic renal cell carcinoma
     Dosage: ORAL DRUG UNSPECIFIED FORM
     Route: 048
     Dates: start: 20220823, end: 20220922
  2. CABOMETYX [Suspect]
     Active Substance: CABOZANTINIB S-MALATE
     Route: 048
     Dates: start: 20221101, end: 20221115
  3. CABOMETYX [Suspect]
     Active Substance: CABOZANTINIB S-MALATE
     Dosage: (ORAL DRUG UNSPECIFIED FORM)
     Route: 048
     Dates: start: 20230207, end: 20230307
  4. OPDIVO [Suspect]
     Active Substance: NIVOLUMAB
     Indication: Metastatic renal cell carcinoma
     Route: 041
     Dates: start: 20220823
  5. FEBUXOSTAT [Concomitant]
     Active Substance: FEBUXOSTAT
     Indication: Product used for unknown indication
  6. CILNIDIPINE [Concomitant]
     Active Substance: CILNIDIPINE
     Indication: Product used for unknown indication
  7. VALSARTAN [Concomitant]
     Active Substance: VALSARTAN
     Indication: Product used for unknown indication
  8. ATORVASTATIN CALCIUM TRIHYDRATE [Concomitant]
     Active Substance: ATORVASTATIN CALCIUM TRIHYDRATE
     Indication: Product used for unknown indication
  9. LEVOTHYROXINE SODIUM [Concomitant]
     Active Substance: LEVOTHYROXINE SODIUM
     Indication: Product used for unknown indication
  10. DUTASTERIDE [Concomitant]
     Active Substance: DUTASTERIDE
     Indication: Product used for unknown indication
  11. Silodosin od [Concomitant]
     Indication: Product used for unknown indication

REACTIONS (10)
  - Dermatitis bullous [Recovering/Resolving]
  - Pain of skin [Recovering/Resolving]
  - Oedema peripheral [Recovering/Resolving]
  - Skin erosion [Recovering/Resolving]
  - Platelet count decreased [Recovered/Resolved]
  - Skin ulcer [Recovering/Resolving]
  - Skin exfoliation [Recovering/Resolving]
  - Rash erythematous [Recovering/Resolving]
  - Cellulitis [Recovering/Resolving]
  - Pruritus [Unknown]

NARRATIVE: CASE EVENT DATE: 20220906
